FAERS Safety Report 15084891 (Version 2)
Quarter: 2018Q3

REPORT INFORMATION
  Report Type: Spontaneous
  Country: DE (occurrence: DE)
  Receive Date: 20180628
  Receipt Date: 20180715
  Transmission Date: 20181010
  Serious: Yes (Hospitalization, Other)
  Sender: FDA-Public Use
  Company Number: PHHY2018DE029426

PATIENT
  Sex: Male

DRUGS (23)
  1. VINCRISTINE [Suspect]
     Active Substance: VINCRISTINE
     Indication: B-CELL LYMPHOMA
     Dosage: 2 MG, QD (FOR ONE DAY)
     Route: 042
     Dates: start: 20180316, end: 20180316
  2. PEGFILGRASTIM [Suspect]
     Active Substance: PEGFILGRASTIM
     Indication: B-CELL LYMPHOMA
     Dosage: 6 MG, QD (FOR ONE DAY)
     Route: 058
     Dates: start: 20180319, end: 20180319
  3. METOPROLOL. [Concomitant]
     Active Substance: METOPROLOL
     Indication: ATRIAL FIBRILLATION
     Dosage: 5 MG, QD
     Route: 042
     Dates: start: 20180324, end: 20180324
  4. KALIUMCHLORIDE [Concomitant]
     Indication: HYPOKALAEMIA
     Dosage: 60 UMOL, QD
     Route: 042
     Dates: start: 20180325
  5. RITUXIMAB. [Suspect]
     Active Substance: RITUXIMAB
     Indication: B-CELL LYMPHOMA
     Dosage: 730 MG, QD (FOR ONE DAY)
     Route: 042
     Dates: start: 20180315, end: 20180315
  6. CYCLOPHOSPHAMIDE. [Suspect]
     Active Substance: CYCLOPHOSPHAMIDE
     Indication: B-CELL LYMPHOMA
     Dosage: 1460 MG, QD (FOR ONE DAY)
     Route: 042
     Dates: start: 20180316, end: 20180316
  7. FENOFIBRAT [Concomitant]
     Active Substance: FENOFIBRATE
     Indication: HYPERCHOLESTEROLAEMIA
     Dosage: 250 MG, QD
     Route: 048
     Dates: start: 20180302
  8. PANTOPRAZOL [Concomitant]
     Active Substance: PANTOPRAZOLE SODIUM
     Indication: PROPHYLAXIS AGAINST GASTROINTESTINAL ULCER
     Dosage: 40 MG, QD
     Route: 048
     Dates: start: 20180307
  9. METRONIDAZOLE. [Concomitant]
     Active Substance: METRONIDAZOLE
     Indication: INFECTION
     Dosage: 3 OT, QD (500 MG/L, TID)
     Route: 042
     Dates: start: 20180324
  10. PREGABALIN. [Concomitant]
     Active Substance: PREGABALIN
     Indication: PAIN
     Dosage: 50 MG, QD
     Route: 048
     Dates: start: 20180302
  11. TAZOBACTAM [Concomitant]
     Active Substance: TAZOBACTAM
     Indication: OEDEMA
     Dosage: 10 MG, QD
     Route: 048
     Dates: start: 20180324, end: 20180325
  12. PREDNISONE. [Suspect]
     Active Substance: PREDNISONE
     Indication: B-CELL LYMPHOMA
     Dosage: 100 MG, QD (FOR FIVE DAYS)
     Route: 048
     Dates: start: 20180316, end: 20180320
  13. FOLIC ACID. [Concomitant]
     Active Substance: FOLIC ACID
     Indication: FOLATE DEFICIENCY
     Dosage: 10 MG, QD (5 MG, BID)
     Route: 048
     Dates: start: 20180326
  14. ACYCLOVIR. [Concomitant]
     Active Substance: ACYCLOVIR
     Indication: INFECTION PROPHYLAXIS
     Dosage: 500 MG, QD (250 MG, BID)
     Route: 042
     Dates: start: 20180328
  15. TORASEMID [Concomitant]
     Active Substance: TORSEMIDE
     Indication: OEDEMA
     Dosage: 10 MG, QD
     Route: 048
     Dates: start: 20180328
  16. PIPERACILLIN/TAZOBACTAM [Concomitant]
     Active Substance: PIPERACILLIN SODIUM\TAZOBACTAM SODIUM
     Indication: INFECTION
     Dosage: 3 OT, QD (4/0.5 MG, TID FOR 2 DAYS)
     Route: 042
     Dates: start: 20180324, end: 20180325
  17. DOXORUBICIN [Suspect]
     Active Substance: DOXORUBICIN
     Indication: B-CELL LYMPHOMA
     Dosage: 96 MG, QD (FOR ONE DAY)
     Route: 042
     Dates: start: 20180316, end: 20180316
  18. NALOXONE HCL [Concomitant]
     Active Substance: NALOXONE HYDROCHLORIDE
     Indication: PAIN
     Dosage: 2 OT, QD 10/6 MG, BID (1?0?1)
     Route: 048
     Dates: start: 20180302
  19. MEROPENEM. [Concomitant]
     Active Substance: MEROPENEM
     Indication: INFECTION
     Dosage: 3 G, QD (1 G, TID)
     Route: 042
     Dates: start: 20180325
  20. DIGITOXIN [Concomitant]
     Active Substance: DIGITOXIN
     Indication: ATRIAL FIBRILLATION
     Dosage: 0.25 MG, QD ((1/2?0?0) FOR 1 DAY)
     Route: 042
     Dates: start: 20180324, end: 20180324
  21. HEPARIN SODIUM. [Concomitant]
     Active Substance: HEPARIN SODIUM
     Indication: PROPHYLAXIS
     Dosage: 1 OT, QD (6000 IE/ML, QD)
     Route: 042
     Dates: start: 20180325
  22. HEPARIN SODIUM. [Concomitant]
     Active Substance: HEPARIN SODIUM
     Dosage: UNK, QD (6000 IE/ML)
     Route: 042
     Dates: start: 20180325
  23. FEBUXOSTAT. [Concomitant]
     Active Substance: FEBUXOSTAT
     Indication: HYPERURICAEMIA
     Dosage: 80 MG, QD
     Route: 048
     Dates: start: 20180305

REACTIONS (1)
  - Thrombosis [Unknown]

NARRATIVE: CASE EVENT DATE: 20180326
